FAERS Safety Report 15151995 (Version 2)
Quarter: 2019Q1

REPORT INFORMATION
  Report Type: Spontaneous
  Country: US (occurrence: US)
  Receive Date: 20180717
  Receipt Date: 20190108
  Transmission Date: 20190417
  Serious: Yes (Hospitalization)
  Sender: FDA-Public Use
  Company Number: US-SUN PHARMACEUTICAL INDUSTRIES LTD-2018US-178295

PATIENT
  Sex: Female

DRUGS (1)
  1. OXCARBAZEPINE. [Suspect]
     Active Substance: OXCARBAZEPINE
     Indication: POST STROKE EPILEPSY
     Dosage: UNK
     Route: 065
     Dates: start: 2017, end: 20170804

REACTIONS (4)
  - Thrombocytopenia [Recovering/Resolving]
  - Haemoglobin abnormal [Unknown]
  - Fall [Unknown]
  - White blood cell count abnormal [Unknown]

NARRATIVE: CASE EVENT DATE: 2017
